FAERS Safety Report 17936232 (Version 1)
Quarter: 2020Q2

REPORT INFORMATION
  Report Type: Spontaneous
  Country: US (occurrence: US)
  Receive Date: 20200624
  Receipt Date: 20200624
  Transmission Date: 20200714
  Serious: No
  Sender: FDA-Public Use
  Company Number: US-MYLANLABS-2020M1056430

PATIENT
  Sex: Female

DRUGS (1)
  1. RIVASTIGMINE TRANSDERMAL SYSTEM [Suspect]
     Active Substance: RIVASTIGMINE
     Indication: PRODUCT USED FOR UNKNOWN INDICATION
     Dosage: 13.3 MILLIGRAM, QD
     Route: 062

REACTIONS (2)
  - Wrong technique in product usage process [Not Recovered/Not Resolved]
  - Product adhesion issue [Unknown]
